FAERS Safety Report 12096407 (Version 2)
Quarter: 2018Q1

REPORT INFORMATION
  Report Type: Spontaneous
  Country: US (occurrence: US)
  Receive Date: 20160220
  Receipt Date: 20180331
  Transmission Date: 20180508
  Serious: No
  Sender: FDA-Public Use
  Company Number: US-AUROBINDO-AUR-APL-2015-06547

PATIENT
  Age: 5 Month
  Sex: Male

DRUGS (1)
  1. AMOXICILLIN AND CLAVULANATEPOTASSIUMFORORALSUSPENSIONUSP600/42.9MG/5ML [Suspect]
     Active Substance: AMOXICILLIN\CLAVULANATE POTASSIUM
     Indication: PRODUCT USED FOR UNKNOWN INDICATION
     Dosage: ? TEASPOON OF POWDER TWICE A DAY
     Route: 048
     Dates: start: 20150713, end: 20150720

REACTIONS (2)
  - Drug ineffective [Recovered/Resolved]
  - Drug administration error [Recovered/Resolved]

NARRATIVE: CASE EVENT DATE: 20150713
